FAERS Safety Report 15886188 (Version 2)
Quarter: 2019Q1

REPORT INFORMATION
  Report Type: Spontaneous
  Country: MX (occurrence: MX)
  Receive Date: 20190129
  Receipt Date: 20190227
  Transmission Date: 20190417
  Serious: Yes (Hospitalization, Other)
  Sender: FDA-Public Use
  Company Number: MX-ELI_LILLY_AND_COMPANY-MX201901012130

PATIENT
  Age: 65 Year
  Sex: Female

DRUGS (3)
  1. GALVUS MET [Concomitant]
     Active Substance: METFORMIN HYDROCHLORIDE\VILDAGLIPTIN
     Indication: PRODUCT USED FOR UNKNOWN INDICATION
  2. HUMULIN N [Suspect]
     Active Substance: INSULIN HUMAN
     Indication: PRODUCT USED FOR UNKNOWN INDICATION
     Dosage: UNK, UNKNOWN
     Route: 065
     Dates: start: 2015
  3. HUMULIN R [Suspect]
     Active Substance: INSULIN HUMAN
     Indication: PRODUCT USED FOR UNKNOWN INDICATION
     Dosage: UNK, UNKNOWN
     Route: 065
     Dates: start: 2015

REACTIONS (12)
  - Embolism [Unknown]
  - Psychiatric symptom [Not Recovered/Not Resolved]
  - Blood glucose increased [Unknown]
  - Fall [Unknown]
  - Drug ineffective [Unknown]
  - Cardiac murmur [Unknown]
  - Hemiparesis [Unknown]
  - Gait disturbance [Recovered/Resolved]
  - Asthenia [Unknown]
  - Facial asymmetry [Unknown]
  - Embolism [Recovered/Resolved with Sequelae]
  - Sensory loss [Unknown]

NARRATIVE: CASE EVENT DATE: 2017
